FAERS Safety Report 8344373-6 (Version None)
Quarter: 2012Q2

REPORT INFORMATION
  Report Type: 
  Country: None (occurrence: None)
  Receive Date: 20120508
  Receipt Date: 20120424
  Transmission Date: 20120825
  Serious: Yes (Hospitalization, Other)
  Sender: FDA-Public Use
  Company Number: CO-AMGEN-COLSP2012017163

PATIENT
  Age: 27 Year
  Sex: Female

DRUGS (3)
  1. FOLIC ACID [Concomitant]
     Indication: PROPHYLAXIS
     Dosage: 10 MG, 1X/DAY
     Dates: start: 20101201, end: 20120201
  2. METHOTREXATE [Concomitant]
     Indication: RHEUMATOID ARTHRITIS
     Dosage: 5 CAPSULES OF 2.5 MG, WEEKLY
     Dates: start: 20101201, end: 20120201
  3. ENBREL [Suspect]
     Indication: RHEUMATOID ARTHRITIS
     Dosage: 50 MG, WEEKLY
     Route: 058
     Dates: start: 20101201, end: 20120121

REACTIONS (5)
  - LIVER DISORDER [None]
  - STAPHYLOCOCCAL ABSCESS [None]
  - ADRENALITIS [None]
  - ACNE [None]
  - ABSCESS SWEAT GLAND [None]
